FAERS Safety Report 8839178 (Version 1)
Quarter: 2012Q4

REPORT INFORMATION
  Report Type: 
  Country: JP (occurrence: JP)
  Receive Date: 20121015
  Receipt Date: 20121015
  Transmission Date: 20130627
  Serious: Yes (Hospitalization)
  Sender: FDA-Public Use
  Company Number: JP-ELI_LILLY_AND_COMPANY-JP201210001152

PATIENT
  Age: 19 Year
  Sex: Female

DRUGS (3)
  1. HUMALOG LISPRO [Suspect]
     Indication: TYPE 1 DIABETES MELLITUS
     Dosage: UNK, tid
     Route: 058
  2. INSULIN GLARGINE [Concomitant]
     Indication: TYPE 1 DIABETES MELLITUS
     Dosage: 20 IU, qd
     Route: 058
  3. INSULIN GLARGINE [Concomitant]
     Dosage: UNK, qd
     Route: 058

REACTIONS (1)
  - Diabetic ketoacidosis [Recovering/Resolving]
